FAERS Safety Report 8903012 (Version 1)
Quarter: 2012Q4

REPORT INFORMATION
  Report Type: 
  Country: GB (occurrence: GB)
  Receive Date: 20121113
  Receipt Date: 20121113
  Transmission Date: 20130627
  Serious: Yes (Other)
  Sender: FDA-Public Use
  Company Number: PHFR2012GB005880

PATIENT
  Age: 50 Year
  Sex: Female

DRUGS (1)
  1. CLOZARIL [Suspect]
     Indication: SCHIZOPHRENIA
     Dosage: 200 mg, UNK
     Route: 048
     Dates: start: 20121028

REACTIONS (6)
  - Abdominal pain upper [Unknown]
  - Neutrophil count increased [Unknown]
  - Diarrhoea [Unknown]
  - Blood pressure decreased [Unknown]
  - Tachycardia [Unknown]
  - White blood cell count increased [Unknown]
